FAERS Safety Report 17068392 (Version 3)
Quarter: 2024Q4

REPORT INFORMATION
  Report Type: Report from Study
  Country: KW (occurrence: KW)
  Receive Date: 20191123
  Receipt Date: 20241224
  Transmission Date: 20250114
  Serious: Yes (Other)
  Sender: REGENERON
  Company Number: KW-BAYER-2019-207852

PATIENT
  Age: 64 Year
  Sex: Male

DRUGS (5)
  1. EYLEA [Suspect]
     Active Substance: AFLIBERCEPT
     Indication: Diabetic retinal oedema
     Dosage: 40 MG/ML. BOTH EYES, SOLUTION FOR INJECTION
     Dates: start: 20190827, end: 20200128
  2. EYLEA [Suspect]
     Active Substance: AFLIBERCEPT
     Indication: Age-related macular degeneration
     Dosage: UNK, SOLUTION FOR INJECTION, 40 MG/ML
  3. ASPIRIN [Suspect]
     Active Substance: ASPIRIN
     Indication: Hypertension
     Dosage: GASTRO-RESISTANT COATED TABLET
  4. INSULIN B [Concomitant]
     Indication: Diabetes mellitus
  5. UNSPECIFIED INGREDIENT [Concomitant]
     Active Substance: UNSPECIFIED INGREDIENT
     Indication: Diabetes mellitus

REACTIONS (4)
  - Eye haemorrhage [Recovered/Resolved]
  - Visual impairment [Recovered/Resolved]
  - Eye irritation [Recovered/Resolved]
  - Eye swelling [Recovered/Resolved]
